FAERS Safety Report 8596311-9 (Version None)
Quarter: 2012Q3

REPORT INFORMATION
  Report Type: 
  Country: None (occurrence: None)
  Receive Date: 20120815
  Receipt Date: 20120809
  Transmission Date: 20120928
  Serious: Yes (Hospitalization, Other)
  Sender: FDA-Public Use
  Company Number: US-ELI_LILLY_AND_COMPANY-US201207002207

PATIENT
  Sex: Male
  Weight: 87.528 kg

DRUGS (10)
  1. SPIRONOLACTONE [Concomitant]
  2. EFFIENT [Suspect]
     Indication: PROPHYLAXIS
     Dosage: UNK
     Dates: start: 20120121
  3. EFFIENT [Suspect]
     Dosage: 10 MG, QD
  4. SIMVASTATIN [Concomitant]
  5. NITROGLYCERIN [Concomitant]
  6. MULTI-VITAMIN [Concomitant]
  7. LOSARTAN POTASSIUM [Concomitant]
  8. ASPIRIN [Concomitant]
  9. CARVEDILOL [Concomitant]
  10. OMEPRAZOLE [Concomitant]

REACTIONS (2)
  - NON-CARDIAC CHEST PAIN [None]
  - SYNCOPE [None]
